FAERS Safety Report 5795716-9 (Version None)
Quarter: 2008Q2

REPORT INFORMATION
  Report Type: 
  Country: None (occurrence: None)
  Receive Date: 20080630
  Receipt Date: 20080624
  Transmission Date: 20081010
  Serious: Yes (Death, Disabling)
  Sender: FDA-Public Use
  Company Number: ZW-BOEHRINGER INGELHEIM GMBH, GERMANY-2008-UK-01301UK

PATIENT
  Sex: Male

DRUGS (6)
  1. VIRAMUNE [Suspect]
     Indication: HIV INFECTION
  2. DIDANOSINE [Suspect]
  3. KALETRA [Concomitant]
  4. CONTRIMOXAZOLE [Concomitant]
  5. FLUCONAZOLE [Concomitant]
  6. FLUCONAZOLE [Concomitant]
     Route: 048

REACTIONS (2)
  - DEATH [None]
  - HEPATOTOXICITY [None]
